FAERS Safety Report 11667534 (Version 1)
Quarter: 2015Q4

REPORT INFORMATION
  Report Type: Spontaneous
  Country: US (occurrence: US)
  Receive Date: 20151027
  Receipt Date: 20151027
  Transmission Date: 20160304
  Serious: Yes (Hospitalization, Other)
  Sender: FDA-Public Use
  Company Number: US-APOTEX-2015AP013859

PATIENT
  Age: 24 Year
  Sex: Female
  Weight: 79 kg

DRUGS (1)
  1. FLECAINIDE ACETATE. [Suspect]
     Active Substance: FLECAINIDE ACETATE
     Indication: PRODUCT USED FOR UNKNOWN INDICATION
     Dosage: INGESTED 3 TO 4 TABLETS
     Route: 048

REACTIONS (8)
  - Accidental overdose [Unknown]
  - Coma [Unknown]
  - Vasoplegia syndrome [Unknown]
  - Generalised tonic-clonic seizure [Recovered/Resolved]
  - Hypotension [Unknown]
  - Unresponsive to stimuli [Recovered/Resolved]
  - Bradyarrhythmia [Unknown]
  - Cardiac arrest [Recovering/Resolving]
